FAERS Safety Report 13343729 (Version 2)
Quarter: 2017Q1

REPORT INFORMATION
  Report Type: Report from Study
  Country: KR (occurrence: KR)
  Receive Date: 20170316
  Receipt Date: 20170324
  Transmission Date: 20170428
  Serious: Yes (Hospitalization)
  Sender: FDA-Public Use
  Company Number: KR-B.I. PHARMACEUTICALS,INC./RIDGEFIELD-2017-BI-013517

PATIENT
  Age: 53 Year
  Sex: Female
  Weight: 46 kg

DRUGS (8)
  1. MEGACE F [Concomitant]
     Indication: DECREASED APPETITE
     Dosage: 5ML?UNIT DOSE AND DAILY DOSE: 1 PACK
     Route: 048
     Dates: start: 20161118
  2. ENCOVER [Concomitant]
     Indication: DECREASED APPETITE
     Dosage: 200ML?UNIT DOSE AND DAILY DOSE: 1 PACK
     Route: 048
     Dates: start: 20161118
  3. FEROBA YOU [Concomitant]
     Indication: ANAEMIA
     Dosage: SR ?UNIT DOSE AND DAILY DOSE: 1T
     Route: 048
     Dates: start: 20170102
  4. TANTUM [Concomitant]
     Active Substance: BENZYDAMINE HYDROCHLORIDE
     Indication: MUCOSAL INFLAMMATION
     Dosage: 100ML?UNIT DOSE AND DAILY DOSE: 1BH
     Route: 050
     Dates: start: 20161117
  5. FREAMINE III NOS [Concomitant]
     Active Substance: AMINO ACIDS
     Indication: SUPPORTIVE CARE
     Route: 065
     Dates: start: 20161124
  6. LANSTON [Concomitant]
     Active Substance: LANSOPRAZOLE
     Indication: PROPHYLAXIS
     Dosage: LFDT?UNIT DOSE AND DAILY DOSE: 1T
     Route: 048
     Dates: start: 20161124
  7. BEECOM HEXA [Concomitant]
     Indication: SUPPORTIVE CARE
     Dosage: 2ML?UNIT DOSE AND DAILY DOSE: 1A
     Route: 065
     Dates: start: 20161124
  8. AFATINIB [Suspect]
     Active Substance: AFATINIB
     Indication: GASTRIC CANCER
     Route: 048
     Dates: start: 20161117, end: 20170307

REACTIONS (4)
  - Jaundice [Recovered/Resolved]
  - Asthenia [Recovered/Resolved]
  - Abdominal distension [Recovered/Resolved]
  - Blood bilirubin increased [Recovered/Resolved]

NARRATIVE: CASE EVENT DATE: 20170307
